FAERS Safety Report 7403765-X (Version None)
Quarter: 2011Q2

REPORT INFORMATION
  Report Type: 
  Country: None (occurrence: None)
  Receive Date: 20110408
  Receipt Date: 20110315
  Transmission Date: 20111010
  Serious: No
  Sender: FDA-Public Use
  Company Number: US-B.I. PHARMACEUTICALS,INC./RIDGEFIELD-2011-BP-08320BP

PATIENT
  Age: 74 Year
  Sex: Male

DRUGS (9)
  1. CARDIZEM [Concomitant]
     Indication: HYPERTENSION
     Route: 048
     Dates: start: 20110301
  2. SYNTHROID [Concomitant]
     Indication: THYROID DISORDER
     Route: 048
  3. OMEGA FISH OIL [Concomitant]
     Indication: VITAMIN SUPPLEMENTATION
     Route: 048
     Dates: start: 20060101
  4. POTASSIUM CHLORIDE [Concomitant]
     Dosage: 20 MEQ
     Route: 048
     Dates: start: 20110301
  5. M.V.I. [Concomitant]
     Route: 048
  6. LISINOPRIL [Concomitant]
     Indication: HYPERTENSION
     Dosage: 20 MG
     Route: 048
     Dates: start: 20110301
  7. SIMVASTATIN [Concomitant]
     Indication: BLOOD CHOLESTEROL
     Route: 048
  8. PRADAXA [Suspect]
     Indication: ATRIAL FIBRILLATION
     Dosage: 300 MG
     Route: 048
     Dates: start: 20110307
  9. LANOXIN [Concomitant]
     Indication: HYPERTENSION
     Route: 048
     Dates: start: 20050101

REACTIONS (1)
  - DYSPNOEA [None]
